FAERS Safety Report 4694597-4 (Version None)
Quarter: 2005Q2

REPORT INFORMATION
  Report Type: 
  Country: None (occurrence: None)
  Receive Date: 20050617
  Receipt Date: 20050603
  Transmission Date: 20051028
  Serious: No
  Sender: FDA-Public Use
  Company Number: 11426

PATIENT
  Age: 3 Year
  Sex: Male

DRUGS (1)
  1. CARBOPLATIN [Suspect]
     Dosage: 360 MG IV
     Route: 042
     Dates: start: 20050518, end: 20050518

REACTIONS (3)
  - PERIORBITAL OEDEMA [None]
  - RASH [None]
  - RHINITIS [None]
